FAERS Safety Report 17651509 (Version 1)
Quarter: 2020Q2

REPORT INFORMATION
  Report Type: Spontaneous
  Country: GB (occurrence: GB)
  Receive Date: 20200409
  Receipt Date: 20200409
  Transmission Date: 20200713
  Serious: Yes (Hospitalization, Other)
  Sender: FDA-Public Use
  Company Number: NVSC2020GB092404

PATIENT
  Age: 66 Year
  Sex: Female

DRUGS (4)
  1. LUTATHERA [Suspect]
     Active Substance: LUTETIUM OXODOTREOTIDE LU-177
     Dosage: 7432 MBQ (4TH CYCLE)
     Route: 065
     Dates: start: 201811
  2. LUTATHERA [Suspect]
     Active Substance: LUTETIUM OXODOTREOTIDE LU-177
     Indication: GASTROENTEROPANCREATIC NEUROENDOCRINE TUMOUR DISEASE
     Dosage: 7716 MBQ (1ST CYCLE)
     Route: 065
     Dates: start: 201805
  3. LUTATHERA [Suspect]
     Active Substance: LUTETIUM OXODOTREOTIDE LU-177
     Dosage: 7080 MBQ (3RD CYCLE)
     Route: 065
     Dates: start: 201809
  4. LUTATHERA [Suspect]
     Active Substance: LUTETIUM OXODOTREOTIDE LU-177
     Dosage: 6993 MBQ (2ND CYCLE)
     Route: 065
     Dates: start: 201806

REACTIONS (7)
  - Hypocalcaemia [Unknown]
  - Hypomagnesaemia [Unknown]
  - Condition aggravated [Recovering/Resolving]
  - Carcinoid syndrome [Recovering/Resolving]
  - Diarrhoea [Unknown]
  - Carcinoid heart disease [Unknown]
  - Flushing [Unknown]

NARRATIVE: CASE EVENT DATE: 202001
